FAERS Safety Report 10866932 (Version 3)
Quarter: 2015Q3

REPORT INFORMATION
  Report Type: Spontaneous
  Country: US (occurrence: US)
  Receive Date: 20150225
  Receipt Date: 20150820
  Transmission Date: 20151125
  Serious: Yes (Hospitalization, Other)
  Sender: FDA-Public Use
  Company Number: US-JNJFOC-20150213143

PATIENT
  Age: 27 Year
  Sex: Female
  Weight: 52.16 kg

DRUGS (6)
  1. METHADONE [Concomitant]
     Active Substance: METHADONE HYDROCHLORIDE
     Indication: BACK PAIN
     Route: 065
     Dates: start: 2010, end: 201102
  2. TYLENOL EXTRA STRENGTH [Suspect]
     Active Substance: ACETAMINOPHEN
     Indication: INFLUENZA LIKE ILLNESS
     Dosage: 4-6 HOURS
     Route: 048
     Dates: start: 20110105, end: 20110111
  3. TYLENOL EXTRA STRENGTH [Suspect]
     Active Substance: ACETAMINOPHEN
     Indication: INFLUENZA LIKE ILLNESS
     Dosage: 4-6 HOURS
     Route: 048
     Dates: start: 20101229, end: 20110104
  4. TYLENOL EXTRA STRENGTH [Suspect]
     Active Substance: ACETAMINOPHEN
     Indication: MENSTRUAL DISORDER
     Dosage: 4-6 HOURS
     Route: 048
     Dates: start: 20110105, end: 20110111
  5. TYLENOL EXTRA STRENGTH [Suspect]
     Active Substance: ACETAMINOPHEN
     Indication: MENSTRUAL DISORDER
     Dosage: 4-6 HOURS
     Route: 048
     Dates: start: 20101229, end: 20110104
  6. TYLENOL REGULAR STRENGTH [Suspect]
     Active Substance: ACETAMINOPHEN
     Indication: PRODUCT USED FOR UNKNOWN INDICATION
     Route: 048
     Dates: start: 2010, end: 2011

REACTIONS (6)
  - Amnesia [Unknown]
  - Extradural haematoma [Recovering/Resolving]
  - Disturbance in attention [Unknown]
  - Accidental overdose [Recovering/Resolving]
  - Hepatitis acute [Recovering/Resolving]
  - Hepatotoxicity [Unknown]

NARRATIVE: CASE EVENT DATE: 201101
